FAERS Safety Report 17581199 (Version 1)
Quarter: 2020Q1

REPORT INFORMATION
  Report Type: Spontaneous
  Country: US (occurrence: US)
  Receive Date: 20200325
  Receipt Date: 20200325
  Transmission Date: 20200409
  Serious: No
  Sender: FDA-Public Use
  Company Number: None

PATIENT
  Sex: Female

DRUGS (7)
  1. LOSARTAN POT [Concomitant]
     Active Substance: LOSARTAN POTASSIUM
  2. VITAMIN D3 [Concomitant]
     Active Substance: CHOLECALCIFEROL
  3. MULTI-VITAMIN TAB [Concomitant]
  4. OMEPRAZOLE. [Concomitant]
     Active Substance: OMEPRAZOLE
  5. ANASTROZOLE. [Concomitant]
     Active Substance: ANASTROZOLE
  6. PROLIA [Suspect]
     Active Substance: DENOSUMAB
     Indication: OSTEOPOROSIS
     Dosage: ?          OTHER FREQUENCY:EVERY SIX MONTHS;OTHER ROUTE:INJECTION?
     Dates: start: 20170427
  7. CALCIUM [Concomitant]
     Active Substance: CALCIUM

REACTIONS (2)
  - Cerebrovascular accident [None]
  - Memory impairment [None]
